FAERS Safety Report 6264704-0 (Version None)
Quarter: 2009Q3

REPORT INFORMATION
  Report Type: 
  Country: None (occurrence: None)
  Receive Date: 20090710
  Receipt Date: 20090629
  Transmission Date: 20100115
  Serious: Yes (Hospitalization, Other)
  Sender: FDA-Public Use
  Company Number: CA-PFIZER INC-2009227187

PATIENT
  Age: 70 Year

DRUGS (5)
  1. ZELDOX [Suspect]
     Indication: SCHIZOPHRENIA
     Dosage: 120 MG, 2X/DAY
     Route: 048
     Dates: start: 20090601, end: 20090612
  2. ZELDOX [Suspect]
     Dosage: 60 MG, 2X/DAY
     Dates: start: 20090525, end: 20090601
  3. OLANZAPINE [Suspect]
     Indication: SCHIZOPHRENIA
     Dosage: 5 MG AT BEDTIME
     Route: 048
     Dates: start: 20080408, end: 20090604
  4. OLANZAPINE [Suspect]
     Dosage: 10 MG AT BEDTIME
     Dates: start: 20090618
  5. OXAZEPAM [Concomitant]
     Indication: INSOMNIA
     Dosage: 15 MG AT BEDTIME
     Dates: start: 20090515

REACTIONS (3)
  - DYSPNOEA [None]
  - GENERALISED OEDEMA [None]
  - WEIGHT INCREASED [None]
